FAERS Safety Report 9433403 (Version 2)
Quarter: 2013Q3

REPORT INFORMATION
  Report Type: Spontaneous
  Country: IT (occurrence: IT)
  Receive Date: 20130731
  Receipt Date: 20130813
  Transmission Date: 20140515
  Serious: Yes (Hospitalization)
  Sender: FDA-Public Use
  Company Number: IT-ABBOTT-13X-083-1127397-00

PATIENT
  Age: 83 Year
  Sex: Female

DRUGS (5)
  1. KLACID [Suspect]
     Indication: PYREXIA
     Route: 048
     Dates: start: 20130203, end: 20130205
  2. DIGOXIN [Interacting]
     Indication: PRODUCT USED FOR UNKNOWN INDICATION
     Route: 048
     Dates: start: 20130205, end: 20130205
  3. PLASIL [Concomitant]
     Indication: PRODUCT USED FOR UNKNOWN INDICATION
  4. SYDERAL STRONG [Concomitant]
     Indication: PRODUCT USED FOR UNKNOWN INDICATION
     Dosage: NUTRITIONAL SUPPLEMENTS
  5. EUFORTYN [Concomitant]
     Indication: PRODUCT USED FOR UNKNOWN INDICATION
     Dosage: NUTRITIONAL SUPPLEMENT

REACTIONS (4)
  - Renal failure acute [Not Recovered/Not Resolved]
  - Toxicity to various agents [Not Recovered/Not Resolved]
  - Drug interaction [Unknown]
  - Cough [Unknown]
